FAERS Safety Report 10413405 (Version 1)
Quarter: 2014Q3

REPORT INFORMATION
  Report Type: Spontaneous
  Country: MX (occurrence: MX)
  Receive Date: 20140827
  Receipt Date: 20140827
  Transmission Date: 20150326
  Serious: Yes (Other)
  Sender: FDA-Public Use
  Company Number: MX-GLAXOSMITHKLINE-A1086775A

PATIENT
  Sex: Male

DRUGS (3)
  1. ISOSORBIDE [Concomitant]
     Active Substance: ISOSORBIDE
  2. COMBODART [Suspect]
     Active Substance: DUTASTERIDE\TAMSULOSIN
     Indication: PROSTATIC SPECIFIC ANTIGEN INCREASED
     Dosage: 1CAP PER DAY
     Route: 048
     Dates: start: 201407
  3. ANTI HYPERTENSIVE [Concomitant]

REACTIONS (1)
  - Hypotension [Unknown]
